FAERS Safety Report 9538003 (Version 2)
Quarter: 2013Q3

REPORT INFORMATION
  Report Type: Report from Study
  Country: ES (occurrence: ES)
  Receive Date: 20130919
  Receipt Date: 20130919
  Transmission Date: 20140515
  Serious: Yes (Life-Threatening, Other)
  Sender: FDA-Public Use
  Company Number: ES-TAKEDA-TPA2013A07800

PATIENT
  Age: 77 Year
  Sex: Female
  Weight: 55 kg

DRUGS (15)
  1. BLINDED ALLOPURINOL [Suspect]
     Indication: TUMOUR LYSIS SYNDROME
     Dosage: UNK UNK, QD
     Route: 048
     Dates: start: 20130809, end: 20130816
  2. BLINDED FEBUXOSTAT [Suspect]
     Indication: TUMOUR LYSIS SYNDROME
     Dosage: UNK UNK, QD
     Route: 048
     Dates: start: 20130809, end: 20130816
  3. ALLOPURINOL [Suspect]
     Indication: TUMOUR LYSIS SYNDROME
     Dosage: UNK, QD
     Route: 048
     Dates: start: 20130809, end: 20130816
  4. CHOP [Concomitant]
     Indication: CHEMOTHERAPY
     Dates: start: 20130811, end: 20130815
  5. OMEPRAZOLE [Concomitant]
     Indication: GASTRITIS PROPHYLAXIS
     Dosage: 20 MG, QD
     Route: 048
     Dates: start: 20130317
  6. LORAZEPAM [Concomitant]
     Indication: ANXIETY
     Dosage: 1 MG, TID
     Route: 048
     Dates: start: 20130613
  7. LOSARTAN [Concomitant]
     Indication: HYPERTENSION
     Dosage: 25 MG, QD
     Route: 048
     Dates: start: 20130802
  8. MIRTAZAPINE [Concomitant]
     Indication: DEPRESSION
     Dosage: 15 MG, QD
     Route: 048
     Dates: start: 20130731
  9. METHYLPREDNISOLONE [Concomitant]
     Indication: PRURITUS
     Dosage: 20 MG, BID
     Route: 048
     Dates: start: 20130802, end: 20130813
  10. ACICLOVIR [Concomitant]
     Indication: ANTIVIRAL TREATMENT
     Dosage: 400 MG, BID
     Route: 048
     Dates: start: 20130809
  11. GRANISETRON [Concomitant]
     Indication: PROPHYLAXIS OF NAUSEA AND VOMITING
     Dosage: 1 MG, BID
     Route: 042
     Dates: start: 20130809
  12. METOCLOPRAMIDE [Concomitant]
     Indication: PROPHYLAXIS OF NAUSEA AND VOMITING
     Dosage: 10 MG, TID
     Route: 042
     Dates: start: 20130809
  13. DEXCHLORPHENIRAMINE [Concomitant]
     Indication: PRURITUS
     Dosage: 2 MG, TID
     Route: 048
     Dates: start: 20130801
  14. FUROSEMIDE [Concomitant]
     Indication: DIURETIC THERAPY
     Dosage: 20 MG, QD
     Route: 042
     Dates: start: 20130729
  15. PARACETAMOL [Concomitant]
     Indication: PAIN
     Dosage: 1 G, TID
     Dates: start: 20130729

REACTIONS (1)
  - Sepsis [Recovering/Resolving]
